FAERS Safety Report 6466693-2 (Version None)
Quarter: 2009Q4

REPORT INFORMATION
  Report Type: 
  Country: None (occurrence: None)
  Receive Date: 20091201
  Receipt Date: 20091201
  Transmission Date: 20100525
  Serious: Yes (Other)
  Sender: FDA-Public Use
  Company Number: None

PATIENT
  Age: 43 Year
  Sex: Male
  Weight: 83.9154 kg

DRUGS (7)
  1. PLAVIX [Suspect]
     Indication: CORONARY ARTERIAL STENT INSERTION
     Dosage: 75 MG DAILY PO
     Route: 048
     Dates: start: 20090312, end: 20090831
  2. PLAVIX [Suspect]
     Indication: CORONARY ARTERIAL STENT INSERTION
     Dosage: 75 MG DAILY PO
     Route: 048
     Dates: start: 20091012, end: 20091130
  3. ZOLOFT [Concomitant]
  4. ASPIRIN [Concomitant]
  5. SIMCOR [Concomitant]
  6. NIACIN [Concomitant]
  7. SIMVASTATIN [Concomitant]

REACTIONS (7)
  - ARTHRALGIA [None]
  - CONTUSION [None]
  - DEPRESSED MOOD [None]
  - FATIGUE [None]
  - HYPOAESTHESIA [None]
  - PENILE PAIN [None]
  - PENIS DISORDER [None]
